FAERS Safety Report 19123572 (Version 1)
Quarter: 2021Q2

REPORT INFORMATION
  Report Type: Report from Study
  Country: CO (occurrence: CO)
  Receive Date: 20210412
  Receipt Date: 20210412
  Transmission Date: 20210717
  Serious: Yes (Hospitalization)
  Sender: FDA-Public Use
  Company Number: NVSC2021CO078222

PATIENT
  Sex: Female
  Weight: 71 kg

DRUGS (1)
  1. REVOLADE [Suspect]
     Active Substance: ELTROMBOPAG OLAMINE
     Indication: IMMUNE THROMBOCYTOPENIA
     Dosage: 50 MG (DAILY)
     Route: 048

REACTIONS (7)
  - Pallor [Unknown]
  - Platelet count decreased [Unknown]
  - Pain [Unknown]
  - Product supply issue [Unknown]
  - Haemoglobin decreased [Unknown]
  - Heavy menstrual bleeding [Unknown]
  - Anaemia [Unknown]
